FAERS Safety Report 10967879 (Version 2)
Quarter: 2015Q3

REPORT INFORMATION
  Report Type: Spontaneous
  Country: US (occurrence: US)
  Receive Date: 20150330
  Receipt Date: 20150916
  Transmission Date: 20151125
  Serious: Yes (Hospitalization, Other)
  Sender: FDA-Public Use
  Company Number: US-GLAXOSMITHKLINE-US2015GSK040773

PATIENT
  Sex: Female

DRUGS (1)
  1. PROMACTA [Suspect]
     Active Substance: ELTROMBOPAG OLAMINE
     Indication: PULMONARY FIBROSIS
     Dosage: 50 MG, QD
     Route: 065
     Dates: start: 20120125

REACTIONS (4)
  - Foot fracture [Unknown]
  - Hospitalisation [Unknown]
  - Drug dose omission [Unknown]
  - Pneumonia [Unknown]
